FAERS Safety Report 21994731 (Version 2)
Quarter: 2023Q2

REPORT INFORMATION
  Report Type: Spontaneous
  Country: US (occurrence: US)
  Receive Date: 20230215
  Receipt Date: 20230501
  Transmission Date: 20230722
  Serious: No
  Sender: FDA-Public Use
  Company Number: US-Vifor (International) Inc.-VIT-2023-01005

PATIENT
  Age: 11 Year
  Sex: Male
  Weight: 26.9 kg

DRUGS (13)
  1. MIRCERA [Suspect]
     Active Substance: METHOXY POLYETHYLENE GLYCOL-EPOETIN BETA
     Indication: Anaemia
     Route: 058
     Dates: start: 20220825, end: 20230313
  2. ACETAMINOPHEN [Concomitant]
     Active Substance: ACETAMINOPHEN
     Indication: Pyrexia
     Dosage: TAKE 384 MG VIA G-TUBE EVERY SIX HOURS AS NEEDED, TAKE 12 ML (384 MG) PRN FEVER.
  3. ASPIRIN [Concomitant]
     Active Substance: ASPIRIN
     Dosage: TAKE 1 TABLET VIA G-TUBE ONCE A DAY
  4. CHILDRENS ZYRTEC ALLERGY [Concomitant]
     Active Substance: CETIRIZINE HYDROCHLORIDE
     Dosage: TAKE 5 ML VIA G-TUBE ONCE A DAY AS NEEDED
  5. ENSURE [Concomitant]
     Active Substance: AMINO ACIDS\DEXTROSE\ELECTROLYTES NOS\SOYBEAN OIL\VITAMINS
     Dosage: TAKE 1 1/2 ONCE A DAY
  6. FLUOXETINE [Concomitant]
     Active Substance: FLUOXETINE HYDROCHLORIDE
     Dosage: TAKE 5 ML (20 MG/5ML) VIA G-TUBE EVERY NIGHT
  7. GENTAMICIN [Concomitant]
     Active Substance: GENTAMICIN
     Dosage: APPLY A SMALL AMOUNT TO AFTECTED AREA AS DIRECTED, APPLY TO PD EXIT AFTER PD EXIT CARE DAILY
     Route: 061
  8. GUANFACINE [Concomitant]
     Active Substance: GUANFACINE
     Dosage: TAKE 1/2 TABLET BY MOUTH ONCE A DAY X 3 DAYS THEN TAKE 1 TAB DAILY
     Route: 048
  9. GUANFACINE [Concomitant]
     Active Substance: GUANFACINE
     Dosage: 1/2 TABLET BY MOUTH ONCE A DAY X 3 DAYS THEN TAKE 1 TAB DAILY
     Route: 048
  10. LACOSAMIDE [Concomitant]
     Active Substance: LACOSAMIDE
     Dosage: TAKE 4 ML (10 MG/ML) VIA G-TUBE TWICE A DAY
  11. MIRALAX [Concomitant]
     Active Substance: POLYETHYLENE GLYCOL 3350
     Indication: Constipation
     Dosage: TAKE 1/2 PACKET DISSOLVED IN WATER ONCE A DAY AS NEEDED
     Route: 048
  12. VITAMIN D3 [Concomitant]
     Active Substance: CHOLECALCIFEROL
     Dosage: TAKE 1 CAPSULE  (1000 MCG) VIA G-TUBE ONCE A DAY AS DIRECTED
  13. VITAMIN B COMPLEX-FOLIC ACID [Concomitant]
     Dosage: TAKE ONE TABLET VIA G-TUBE ONCE A DAY.

REACTIONS (1)
  - Off label use [Unknown]

NARRATIVE: CASE EVENT DATE: 20220825
